FAERS Safety Report 6741025-0 (Version None)
Quarter: 2010Q2

REPORT INFORMATION
  Report Type: 
  Country: None (occurrence: None)
  Receive Date: 20100526
  Receipt Date: 20100511
  Transmission Date: 20101027
  Serious: Yes (Other)
  Sender: FDA-Public Use
  Company Number: AU-JNJFOC-20100400349

PATIENT
  Sex: Male

DRUGS (4)
  1. TRAMAL [Suspect]
     Indication: NECK PAIN
     Dosage: DAILY
     Route: 065
  2. METOHEXAL [Concomitant]
     Route: 065
  3. MORPHINE SULFATE [Concomitant]
     Route: 065
  4. PROTHIADEN [Concomitant]
     Route: 065

REACTIONS (4)
  - ARRHYTHMIA [None]
  - FATIGUE [None]
  - HYPERTENSION [None]
  - PALPITATIONS [None]
